FAERS Safety Report 16747602 (Version 3)
Quarter: 2021Q4

REPORT INFORMATION
  Report Type: Report from Study
  Country: ES (occurrence: ES)
  Receive Date: 20190827
  Receipt Date: 20211117
  Transmission Date: 20220303
  Serious: Yes (Other)
  Sender: FDA-Public Use
  Company Number: ES-GILEAD-2019-0396594

PATIENT
  Age: 17 Year
  Sex: Male
  Weight: 70 kg

DRUGS (12)
  1. TENOFOVIR [Suspect]
     Active Substance: TENOFOVIR
     Indication: Chronic hepatitis B
     Dosage: 245 MILLIGRAM, QW (Q1WK)
     Route: 065
     Dates: start: 201411
  2. TENOFOVIR [Suspect]
     Active Substance: TENOFOVIR
     Dosage: 245 MILLIGRAM, QD
     Route: 065
     Dates: start: 201511
  3. TENOFOVIR [Suspect]
     Active Substance: TENOFOVIR
     Dosage: 245 MILLIGRAM, QOD
     Route: 065
     Dates: start: 201807
  4. TENOFOVIR [Suspect]
     Active Substance: TENOFOVIR
     Dosage: 245 MILLIGRAM, Q4D
     Route: 065
     Dates: start: 201902
  5. TENOFOVIR [Suspect]
     Active Substance: TENOFOVIR
     Dosage: UNK
     Route: 065
     Dates: start: 201905
  6. ENALAPRIL [Concomitant]
     Active Substance: ENALAPRIL
     Dosage: UNK
     Dates: start: 201808, end: 201812
  7. VITAMIN D                          /00318501/ [Concomitant]
     Dosage: UNK
  8. ARANESP [Concomitant]
     Active Substance: DARBEPOETIN ALFA
     Dosage: UNK
  9. CYCLOSPORINE [Concomitant]
     Active Substance: CYCLOSPORINE
     Dosage: 15 UNK, QD
     Dates: start: 201801
  10. SODIUM BICARBONATE [Concomitant]
     Active Substance: SODIUM BICARBONATE
     Dosage: UNK
  11. PREDNISONE [Concomitant]
     Active Substance: PREDNISONE
     Dosage: UNK
  12. CELLCEPT [Concomitant]
     Active Substance: MYCOPHENOLATE MOFETIL\MYCOPHENOLATE MOFETIL HYDROCHLORIDE
     Dosage: UNK

REACTIONS (9)
  - Shock haemorrhagic [Recovered/Resolved]
  - Renal transplant [Recovered/Resolved]
  - Helicobacter duodenal ulcer [Unknown]
  - Renal tubular disorder [Unknown]
  - Gastrointestinal haemorrhage [Unknown]
  - Single functional kidney [Not Recovered/Not Resolved]
  - Renal tubular injury [Unknown]
  - Glomerular filtration rate decreased [Unknown]
  - Treatment noncompliance [Unknown]

NARRATIVE: CASE EVENT DATE: 20151101
